FAERS Safety Report 10921627 (Version 1)
Quarter: 2015Q1

REPORT INFORMATION
  Report Type: Spontaneous
  Country: US (occurrence: US)
  Receive Date: 20150317
  Receipt Date: 20150317
  Transmission Date: 20150721
  Serious: Yes (Other)
  Sender: FDA-Public Use
  Company Number: US-BAYER-2015-035792

PATIENT

DRUGS (1)
  1. CIPRO [Suspect]
     Active Substance: CIPROFLOXACIN HYDROCHLORIDE
     Dosage: UNK

REACTIONS (9)
  - Restlessness [None]
  - Injury [None]
  - Tinnitus [None]
  - Dizziness [None]
  - Burning sensation [None]
  - Confusional state [None]
  - Insomnia [None]
  - Chest pain [None]
  - Tremor [None]
